FAERS Safety Report 10009601 (Version 2)
Quarter: 2014Q1

REPORT INFORMATION
  Report Type: Spontaneous
  Country: US (occurrence: US)
  Receive Date: 20140312
  Receipt Date: 20140312
  Transmission Date: 20141002
  Serious: Yes (Other)
  Sender: FDA-Public Use
  Company Number: US-INCYTE CORPORATION-2012IN001674

PATIENT
  Age: 64 Year
  Sex: Male
  Weight: 88.89 kg

DRUGS (9)
  1. JAKAFI [Suspect]
     Indication: MYELOFIBROSIS
     Dosage: 20 MG, BID
     Route: 048
     Dates: start: 20120223, end: 20120419
  2. JAKAFI [Suspect]
     Indication: SPLENOMEGALY
     Dosage: 5 MG, BID
     Route: 048
     Dates: start: 20120427
  3. CLONAZEPAM [Concomitant]
  4. FERROUS SULFATE [Concomitant]
  5. GABAPENTIN [Concomitant]
  6. HYDROXYZINE [Concomitant]
  7. OMEPRAZOLE [Concomitant]
  8. TRENTAL [Concomitant]
  9. VITAMIN C [Concomitant]

REACTIONS (3)
  - Thrombocytopenia [Not Recovered/Not Resolved]
  - Haemoglobin decreased [Not Recovered/Not Resolved]
  - Haematocrit decreased [Not Recovered/Not Resolved]
